FAERS Safety Report 21257964 (Version 2)
Quarter: 2022Q4

REPORT INFORMATION
  Report Type: Report from Study
  Country: BR (occurrence: BR)
  Receive Date: 20220826
  Receipt Date: 20221122
  Transmission Date: 20230112
  Serious: Yes (Other)
  Sender: FDA-Public Use
  Company Number: BR-NOVARTISPH-NVSC2022BR191396

PATIENT
  Sex: Male

DRUGS (3)
  1. COSENTYX [Suspect]
     Active Substance: SECUKINUMAB
     Indication: Product used for unknown indication
     Dosage: UNK
     Route: 065
  2. COSENTYX [Suspect]
     Active Substance: SECUKINUMAB
     Dosage: UNK (LAST APPLICATION)
     Route: 065
     Dates: start: 20220822
  3. COSENTYX [Suspect]
     Active Substance: SECUKINUMAB
     Dosage: UNK (STOP DATE 60/70 DAYS AGO)
     Route: 065

REACTIONS (6)
  - Psoriatic arthropathy [Unknown]
  - Musculoskeletal stiffness [Unknown]
  - Psoriasis [Unknown]
  - Pain [Recovered/Resolved]
  - Inflammation [Unknown]
  - Therapeutic product effect decreased [Unknown]
